FAERS Safety Report 24781933 (Version 1)
Quarter: 2024Q4

REPORT INFORMATION
  Report Type: Spontaneous
  Country: GB (occurrence: GB)
  Receive Date: 20241227
  Receipt Date: 20241227
  Transmission Date: 20250114
  Serious: Yes (Other)
  Sender: ACCORD
  Company Number: None

PATIENT
  Age: 96 Year
  Sex: Male
  Weight: 61 kg

DRUGS (3)
  1. ATORVASTATIN [Suspect]
     Active Substance: ATORVASTATIN
     Indication: Product used for unknown indication
  2. CARBOMER [Concomitant]
     Active Substance: CARBOMER
     Dosage: USE AS REQUIRED
     Dates: start: 20240830, end: 20241012
  3. CODEINE [Concomitant]
     Active Substance: CODEINE
     Indication: Myalgia
     Dosage: TAKE ONE 4 TIMES/DAY ( IF REQUIRED )
     Dates: start: 20241122

REACTIONS (4)
  - Myositis [Recovering/Resolving]
  - Acute necrotising myelitis [Recovering/Resolving]
  - Myalgia [Unknown]
  - Immune-mediated myositis [Unknown]
